FAERS Safety Report 10016607 (Version 1)
Quarter: 2014Q1

REPORT INFORMATION
  Report Type: Spontaneous
  Country: GB (occurrence: GB)
  Receive Date: 20140317
  Receipt Date: 20140317
  Transmission Date: 20141002
  Serious: Yes (Other)
  Sender: FDA-Public Use
  Company Number: GB-PFIZER INC-2014071498

PATIENT
  Age: 48 Year
  Sex: Female

DRUGS (6)
  1. PREMARIN [Suspect]
     Dosage: UNK
  2. CLIMAGEST [Suspect]
     Indication: HORMONE REPLACEMENT THERAPY
     Dosage: UNK
  3. CLIMESSE [Suspect]
     Indication: HORMONE REPLACEMENT THERAPY
     Dosage: UNK
  4. ESTRADERM [Suspect]
     Indication: HORMONE REPLACEMENT THERAPY
     Dosage: 25 UG TRANSTHERAPEUTIC-SYSTEMS
     Route: 062
  5. ESCITALOPRAM [Concomitant]
     Indication: DEPRESSION
     Dosage: UNK
  6. PROZAC [Concomitant]
     Indication: DEPRESSION
     Dosage: UNK

REACTIONS (10)
  - Diabetes mellitus inadequate control [Unknown]
  - Blood pressure inadequately controlled [Unknown]
  - Burning sensation [Unknown]
  - Drug ineffective [Unknown]
  - Malaise [Unknown]
  - Immune system disorder [Unknown]
  - Feeling abnormal [Unknown]
  - Parosmia [Unknown]
  - Depression [Unknown]
  - Blood cortisol decreased [Unknown]
